FAERS Safety Report 5904357-1 (Version None)
Quarter: 2008Q4

REPORT INFORMATION
  Report Type: 
  Country: None (occurrence: None)
  Receive Date: 20081001
  Receipt Date: 20080923
  Transmission Date: 20090506
  Serious: Yes (Disabling)
  Sender: FDA-Public Use
  Company Number: PHHY2008FI22285

PATIENT
  Sex: Male

DRUGS (16)
  1. ZOMETA [Suspect]
     Indication: METASTASES TO BONE
     Dosage: 4 MG EVERY 4 WEEKS
     Route: 042
     Dates: start: 20060705, end: 20080701
  2. ESTRACYT                                /SCH/ [Concomitant]
     Dosage: 560 MG DAILY
     Dates: start: 20040914, end: 20060403
  3. MICARDIS [Concomitant]
     Dosage: UNK
     Dates: end: 20060701
  4. TAXOTERE [Concomitant]
     Dosage: UNK
     Dates: start: 20060626, end: 20070918
  5. OMEPRAZOL ^ACYFABRIK^ [Concomitant]
     Dosage: UNK
     Dates: start: 20040403
  6. KYTRIL - FOR INFUSION [Concomitant]
     Dosage: UNK
     Dates: start: 20060626
  7. ARCOXIA [Concomitant]
     Dosage: UNK
     Dates: start: 20060601
  8. OXAMIN [Concomitant]
     Dosage: UNK
     Dates: start: 20060618
  9. MIRTAZAPINE [Concomitant]
     Dosage: UNK
     Dates: start: 20060809
  10. PREDNISOLON [Concomitant]
     Dosage: 10 MG DAILY
     Dates: start: 20070926, end: 20080821
  11. TRAMAL [Concomitant]
     Dosage: UNK
     Dates: start: 20071017
  12. ARANESP [Concomitant]
     Dosage: UNK
     Dates: start: 20070509, end: 20071121
  13. NOVANTRONE [Concomitant]
     Dosage: UNK
     Dates: start: 20070918, end: 20080109
  14. NAVELBINE [Concomitant]
     Dosage: UNK
     Dates: start: 20080627, end: 20080821
  15. BONEFOS ^ASTRA^ [Concomitant]
     Dosage: 1600 MG
     Dates: start: 20040914, end: 20060626
  16. ANTIBIOTICS [Concomitant]

REACTIONS (5)
  - BONE EROSION [None]
  - BREATH ODOUR [None]
  - GINGIVAL SWELLING [None]
  - OSTEONECROSIS [None]
  - PAIN IN JAW [None]
